FAERS Safety Report 9096810 (Version 2)
Quarter: 2013Q1

REPORT INFORMATION
  Report Type: Spontaneous
  Country: DE (occurrence: KR)
  Receive Date: 20130124
  Receipt Date: 20130212
  Transmission Date: 20140127
  Serious: Yes (Disabling)
  Sender: FDA-Public Use
  Company Number: 2013SP000355

PATIENT
  Age: 26 Year
  Sex: Female

DRUGS (1)
  1. OMNARIS NASAL SPRAY [Suspect]
     Indication: RHINITIS ALLERGIC
     Route: 045
     Dates: start: 201301

REACTIONS (1)
  - Visual impairment [Not Recovered/Not Resolved]
